FAERS Safety Report 21209018 (Version 1)
Quarter: 2022Q3

REPORT INFORMATION
  Report Type: Spontaneous
  Country: US (occurrence: US)
  Receive Date: 20220812
  Receipt Date: 20220812
  Transmission Date: 20221027
  Serious: No
  Sender: FDA-Public Use
  Company Number: US-BAUSCH-BL-2022-019528

PATIENT
  Age: 36 Year
  Sex: Male

DRUGS (1)
  1. JUBLIA [Suspect]
     Active Substance: EFINACONAZOLE
     Indication: Onychomycosis
     Route: 061

REACTIONS (4)
  - Onychomycosis [Unknown]
  - Condition aggravated [Unknown]
  - Patient dissatisfaction with treatment [Unknown]
  - Product packaging quantity issue [Unknown]
